FAERS Safety Report 6795949-9 (Version None)
Quarter: 2010Q2

REPORT INFORMATION
  Report Type: 
  Country: None (occurrence: None)
  Receive Date: 20100625
  Receipt Date: 20100617
  Transmission Date: 20101027
  Serious: Yes (Hospitalization)
  Sender: FDA-Public Use
  Company Number: B0661663A

PATIENT
  Age: 75 Year
  Sex: Female
  Weight: 47 kg

DRUGS (7)
  1. VALTREX [Suspect]
     Indication: HERPES ZOSTER
     Dosage: 3000MG PER DAY
     Route: 048
     Dates: start: 20100524, end: 20100525
  2. PONTAL [Suspect]
     Indication: HERPES ZOSTER
     Dosage: 4IUAX PER DAY
     Route: 048
     Dates: start: 20100524, end: 20100526
  3. METHYCOOL [Concomitant]
     Indication: HERPES ZOSTER
     Dosage: 3IUAX PER DAY
     Route: 048
     Dates: start: 20100524, end: 20100525
  4. MUCOSTA [Concomitant]
     Indication: HERPES ZOSTER
     Dosage: 3IUAX PER DAY
     Route: 048
     Dates: start: 20100524, end: 20100526
  5. CARTEOLOL HYDROCHLORIDE [Concomitant]
     Indication: DRUG USE FOR UNKNOWN INDICATION
     Route: 031
  6. KARY UNI [Concomitant]
     Indication: DRUG USE FOR UNKNOWN INDICATION
     Route: 031
  7. GATIFLOXACIN [Concomitant]
     Indication: DRUG USE FOR UNKNOWN INDICATION
     Route: 031

REACTIONS (6)
  - HEPATIC FUNCTION ABNORMAL [None]
  - HEPATITIS [None]
  - HEPATITIS ACUTE [None]
  - MALAISE [None]
  - RENAL FAILURE ACUTE [None]
  - VOMITING [None]
